FAERS Safety Report 23064193 (Version 3)
Quarter: 2023Q4

REPORT INFORMATION
  Report Type: Spontaneous
  Country: DE (occurrence: DE)
  Receive Date: 20231013
  Receipt Date: 20231030
  Transmission Date: 20240109
  Serious: Yes (Other)
  Sender: FDA-Public Use
  Company Number: DE-BIOVITRUM-2023-DE-015659

PATIENT

DRUGS (1)
  1. PEGCETACOPLAN [Suspect]
     Active Substance: PEGCETACOPLAN
     Indication: Paroxysmal nocturnal haemoglobinuria
     Dosage: 2X/WEEK SINCE 14-JUL-2023 DOSE INCREASE TO 1/EVERY 3RD DAY
     Route: 058
     Dates: start: 20221128

REACTIONS (7)
  - Haemolysis [Unknown]
  - Drug ineffective [Unknown]
  - Anaemia [Unknown]
  - Drug specific antibody [Unknown]
  - Blood product transfusion dependent [Unknown]
  - Condition aggravated [Unknown]
  - Fatigue [Unknown]

NARRATIVE: CASE EVENT DATE: 20230626
